FAERS Safety Report 9348764 (Version 1)
Quarter: 2013Q2

REPORT INFORMATION
  Report Type: Spontaneous
  Country: US (occurrence: US)
  Receive Date: 20130614
  Receipt Date: 20130614
  Transmission Date: 20140414
  Serious: Yes (Hospitalization, Other)
  Sender: FDA-Public Use
  Company Number: US-BAYER-2013-070838

PATIENT
  Age: 20 Year
  Sex: Female

DRUGS (7)
  1. YAZ [Suspect]
  2. XANAX [Concomitant]
     Dosage: UNK
     Dates: start: 20110926
  3. BENADRYL [Concomitant]
     Dosage: UNK
     Dates: start: 20110926
  4. NEXIUM [Concomitant]
  5. TOPAMAX [Concomitant]
  6. PHENERGAN [Concomitant]
  7. CARAFATE [Concomitant]

REACTIONS (3)
  - Jugular vein thrombosis [None]
  - Subclavian vein thrombosis [None]
  - Cerebral thrombosis [None]
